FAERS Safety Report 8992730 (Version 2)
Quarter: 2013Q1

REPORT INFORMATION
  Report Type: Spontaneous
  Country: JP (occurrence: JP)
  Receive Date: 20130101
  Receipt Date: 20130131
  Transmission Date: 20140127
  Serious: Yes (Death)
  Sender: FDA-Public Use
  Company Number: JP-ROCHE-1173613

PATIENT
  Age: 48 Year
  Sex: Male
  Weight: 55 kg

DRUGS (11)
  1. AVASTIN [Suspect]
     Indication: RECTAL CANCER METASTATIC
     Dosage: DOSAGE IS UNCERTAIN.
     Route: 041
     Dates: start: 201011, end: 201107
  2. AVASTIN [Suspect]
     Indication: RECTAL CANCER METASTATIC
     Dosage: DOSAGE IS UNCERTAIN.
     Route: 041
     Dates: start: 201107, end: 201111
  3. AVASTIN [Suspect]
     Indication: RECTAL CANCER METASTATIC
     Dosage: DOSAGE IS UNCERTAIN.
     Route: 041
     Dates: start: 201111, end: 201202
  4. OXALIPLATIN [Concomitant]
     Indication: RECTAL CANCER METASTATIC
     Dosage: DOSAGE IS UNCERTAIN.
     Route: 041
     Dates: start: 201011, end: 201107
  5. 5-FU [Concomitant]
     Indication: RECTAL CANCER METASTATIC
     Dosage: DOSAGE IS UNCERTAIN.
     Route: 040
     Dates: start: 201011, end: 201107
  6. 5-FU [Concomitant]
     Dosage: DOSAGE IS UNCERTAIN.
     Route: 041
     Dates: start: 201011, end: 201107
  7. 5-FU [Concomitant]
     Dosage: DOSAGE IS UNCERTAIN.
     Route: 040
     Dates: start: 201107, end: 201111
  8. 5-FU [Concomitant]
     Dosage: DOSAGE IS UNCERTAIN.
     Route: 041
     Dates: start: 201107, end: 201111
  9. CALCIUM LEVOFOLINATE [Concomitant]
     Indication: RECTAL CANCER METASTATIC
     Dosage: DOSAGE IS UNCERTAIN.
     Route: 041
     Dates: start: 201011, end: 201107
  10. CALCIUM LEVOFOLINATE [Concomitant]
     Indication: RECTAL CANCER METASTATIC
     Dosage: DOSAGE IS UNCERTAIN.
     Route: 041
     Dates: start: 201107, end: 201111
  11. IRINOTECAN HYDROCHLORIDE [Concomitant]
     Indication: RECTAL CANCER METASTATIC
     Dosage: DOSAGE IS UNCERTAIN.
     Route: 041
     Dates: start: 201111, end: 2012

REACTIONS (2)
  - Disease progression [Fatal]
  - Neutrophil count decreased [Recovered/Resolved]
